FAERS Safety Report 8333538-5 (Version None)
Quarter: 2012Q2

REPORT INFORMATION
  Report Type: 
  Country: None (occurrence: None)
  Receive Date: 20120503
  Receipt Date: 20120424
  Transmission Date: 20120825
  Serious: Yes (Other)
  Sender: FDA-Public Use
  Company Number: US-JNJFOC-20120308039

PATIENT
  Sex: Female

DRUGS (17)
  1. KLONOPIN [Concomitant]
     Route: 065
  2. RISPERDAL [Concomitant]
     Route: 065
  3. FLEXERIL [Concomitant]
     Route: 065
  4. SOMA [Concomitant]
     Indication: BACK PAIN
     Route: 065
  5. DITROPAN [Concomitant]
     Route: 065
  6. ATENOLOL [Concomitant]
     Route: 065
  7. PRAVASTATIN [Concomitant]
     Route: 065
  8. LEVAQUIN [Suspect]
     Indication: CYSTITIS
     Route: 065
     Dates: start: 20110101, end: 20110101
  9. NEURONTIN [Concomitant]
     Indication: ORAL PAIN
     Route: 065
  10. ULTRAM [Concomitant]
     Indication: BACK PAIN
     Route: 065
  11. BUTRANS [Concomitant]
     Route: 065
  12. ASPIRIN [Concomitant]
     Route: 065
  13. TENORMIN [Concomitant]
     Route: 065
  14. LASIX [Concomitant]
     Route: 065
  15. VITAMIN D [Concomitant]
     Route: 065
  16. BACLOFEN [Concomitant]
     Indication: BACK PAIN
     Route: 065
  17. PHENAZOPYRIDINE HCL TAB [Concomitant]
     Route: 065

REACTIONS (14)
  - BACK PAIN [None]
  - OEDEMA PERIPHERAL [None]
  - HYPERSENSITIVITY [None]
  - NERVE INJURY [None]
  - ASTHENIA [None]
  - PAIN IN EXTREMITY [None]
  - TREMOR [None]
  - MEMORY IMPAIRMENT [None]
  - ANXIETY [None]
  - GAIT DISTURBANCE [None]
  - DIZZINESS [None]
  - LOSS OF CONSCIOUSNESS [None]
  - DISTURBANCE IN ATTENTION [None]
  - CELLULITIS [None]
